FAERS Safety Report 15184560 (Version 1)
Quarter: 2018Q3

REPORT INFORMATION
  Report Type: Spontaneous
  Country: US (occurrence: US)
  Receive Date: 20180723
  Receipt Date: 20180723
  Transmission Date: 20181010
  Serious: No
  Sender: FDA-Public Use
  Company Number: US-AMGEN-USASP2018083948

PATIENT
  Age: 75 Year
  Sex: Female

DRUGS (4)
  1. LASIX [Concomitant]
     Active Substance: FUROSEMIDE
     Indication: OEDEMA PERIPHERAL
     Dosage: 40 MG, Q6H (FOUR TIMES A DAY)
  2. LIPITOR [Suspect]
     Active Substance: ATORVASTATIN CALCIUM
     Indication: BLOOD CHOLESTEROL ABNORMAL
     Dosage: UNK
     Route: 065
  3. REPATHA [Suspect]
     Active Substance: EVOLOCUMAB
     Indication: BLOOD CHOLESTEROL ABNORMAL
     Dosage: 140 MG/ML, Q2WK
     Route: 065
     Dates: start: 2016
  4. AMIODARONE [Concomitant]
     Active Substance: AMIODARONE
     Dosage: UNK

REACTIONS (10)
  - Muscle disorder [Unknown]
  - Dyspnoea [Unknown]
  - Mobility decreased [Unknown]
  - Feeling abnormal [Unknown]
  - Dysphonia [Unknown]
  - Oedema peripheral [Unknown]
  - Chest discomfort [Unknown]
  - Malaise [Unknown]
  - Hypoacusis [Unknown]
  - Back pain [Unknown]

NARRATIVE: CASE EVENT DATE: 2018
